FAERS Safety Report 24794813 (Version 1)
Quarter: 2024Q4

REPORT INFORMATION
  Report Type: Spontaneous
  Country: GB (occurrence: GB)
  Receive Date: 20241231
  Receipt Date: 20241231
  Transmission Date: 20250115
  Serious: Yes (Other)
  Sender: BAXTER
  Company Number: GB-CRESCENT PHARMA LIMITED-E2B_00003302

PATIENT
  Age: 55 Year
  Sex: Male

DRUGS (21)
  1. FUROSEMIDE [Suspect]
     Active Substance: FUROSEMIDE
     Indication: Lung disorder
     Dosage: 40 MG
     Route: 065
     Dates: start: 20160402
  2. FUROSEMIDE [Suspect]
     Active Substance: FUROSEMIDE
     Indication: Pulmonary oedema
     Dosage: 40 MG
     Route: 065
     Dates: start: 20160402
  3. FUROSEMIDE [Suspect]
     Active Substance: FUROSEMIDE
     Indication: Left ventricular dysfunction
     Dosage: 40 MG
     Route: 065
     Dates: start: 20160402
  4. BOCOCIZUMAB [Suspect]
     Active Substance: BOCOCIZUMAB
     Indication: Cardiovascular disorder
     Dosage: 150 MG, EVERY 2 WEEKS
     Route: 058
     Dates: start: 20150908, end: 20161101
  5. CARVEDILOL [Suspect]
     Active Substance: CARVEDILOL
     Indication: Angina pectoris
     Dosage: 25 MG
     Route: 065
     Dates: start: 20110616
  6. ISOSORBIDE MONONITRATE [Suspect]
     Active Substance: ISOSORBIDE MONONITRATE
     Indication: Angina pectoris
     Dosage: 10 MG
     Route: 048
     Dates: start: 20160205
  7. IVABRADINE [Suspect]
     Active Substance: IVABRADINE
     Indication: Angina pectoris
     Dosage: 5 MG
     Route: 065
     Dates: start: 20150211
  8. OMEPRAZOLE [Suspect]
     Active Substance: OMEPRAZOLE
     Indication: Dyspepsia
     Dosage: UNK
     Route: 048
     Dates: start: 20140116
  9. QUETIAPINE [Suspect]
     Active Substance: QUETIAPINE
     Indication: Depression
     Dosage: UNK
     Route: 048
     Dates: start: 20150826
  10. RAMIPRIL [Suspect]
     Active Substance: RAMIPRIL
     Indication: Cardiac failure
     Dosage: 1.25 MG
     Route: 048
     Dates: start: 20130813, end: 20160629
  11. ASPIRIN [Concomitant]
     Active Substance: ASPIRIN
     Indication: Cardiovascular disorder
     Dosage: UNK
     Dates: start: 20130708
  12. ATORVASTATIN [Concomitant]
     Active Substance: ATORVASTATIN
     Indication: Cardiovascular disorder
     Dosage: UNK
     Dates: start: 20130708
  13. NITROGLYCERIN [Concomitant]
     Active Substance: NITROGLYCERIN
     Indication: Pain
     Dosage: UNK
     Dates: start: 20130902
  14. ACETAMINOPHEN\CODEINE PHOSPHATE [Concomitant]
     Active Substance: ACETAMINOPHEN\CODEINE PHOSPHATE
     Indication: Pain in extremity
     Dosage: UNK
     Dates: start: 20110616
  15. BETAMETHASONE DIPROPIONATE\CLOTRIMAZOLE [Concomitant]
     Active Substance: BETAMETHASONE DIPROPIONATE\CLOTRIMAZOLE
     Indication: Psoriasis
     Dosage: UNK
     Dates: start: 20150626
  16. METHOTREXATE [Concomitant]
     Active Substance: METHOTREXATE
     Indication: Psoriasis
     Dosage: UNK
     Dates: start: 20150727
  17. SERTRALINE [Concomitant]
     Active Substance: SERTRALINE HYDROCHLORIDE
     Indication: Depression
     Dosage: UNK
     Dates: start: 20110816
  18. ENTRESTO [Concomitant]
     Active Substance: SACUBITRIL\VALSARTAN
     Indication: Ventricular dysfunction
     Dosage: 49/51
     Dates: start: 20160701
  19. CODEINE [Concomitant]
     Active Substance: CODEINE
  20. FOLIC ACID [Concomitant]
     Active Substance: FOLIC ACID
     Indication: Anaemia
     Dosage: UNK
     Dates: start: 20131211
  21. ACETAMINOPHEN [Concomitant]
     Active Substance: ACETAMINOPHEN
     Indication: Pain in extremity
     Dosage: UNK
     Dates: start: 20110616

REACTIONS (11)
  - Anaemia [Unknown]
  - Psoriasis [Unknown]
  - Contusion [Unknown]
  - Fluid retention [Unknown]
  - Pulmonary oedema [Unknown]
  - Presyncope [Unknown]
  - Angina pectoris [Unknown]
  - Oedema peripheral [Unknown]
  - Ventricular dysfunction [Unknown]
  - Cardiac failure [Unknown]
  - Hypotension [Unknown]

NARRATIVE: CASE EVENT DATE: 20130919
